FAERS Safety Report 13476707 (Version 2)
Quarter: 2017Q2

REPORT INFORMATION
  Report Type: Spontaneous
  Country: FR (occurrence: FR)
  Receive Date: 20170425
  Receipt Date: 20170517
  Transmission Date: 20170830
  Serious: Yes (Other)
  Sender: FDA-Public Use
  Company Number: FR-PFIZER INC-2017171730

PATIENT
  Age: 70 Year
  Sex: Male

DRUGS (2)
  1. DICLOFENAC [Concomitant]
     Active Substance: DICLOFENAC
     Indication: PAIN
     Dosage: 50 MG, SINGLE
     Route: 048
     Dates: start: 201703, end: 201703
  2. DALACINE [Suspect]
     Active Substance: CLINDAMYCIN HYDROCHLORIDE
     Indication: POST PROCEDURAL INFECTION
     Dosage: 1800 MG, DAILY
     Route: 048
     Dates: start: 20170308, end: 20170316

REACTIONS (5)
  - Acute kidney injury [Recovering/Resolving]
  - Decreased appetite [Recovered/Resolved]
  - Proteinuria [Recovering/Resolving]
  - Weight decreased [Recovered/Resolved]
  - Dysgeusia [Recovered/Resolved]

NARRATIVE: CASE EVENT DATE: 201703
